FAERS Safety Report 25430737 (Version 1)
Quarter: 2025Q2

REPORT INFORMATION
  Report Type: Spontaneous
  Country: BR (occurrence: BR)
  Receive Date: 20250612
  Receipt Date: 20250612
  Transmission Date: 20250717
  Serious: Yes (Other)
  Sender: MERCK SHARP & DOHME LLC
  Company Number: BR-009507513-2293930

PATIENT
  Age: 44 Year

DRUGS (4)
  1. PEMBROLIZUMAB [Suspect]
     Active Substance: PEMBROLIZUMAB
     Dates: start: 20250404, end: 20250404
  2. PEMBROLIZUMAB [Suspect]
     Active Substance: PEMBROLIZUMAB
     Dates: start: 20250530, end: 20250530
  3. external radiotherapy [Concomitant]
  4. CISPLATIN [Suspect]
     Active Substance: CISPLATIN
     Dates: start: 20250404

REACTIONS (2)
  - Ototoxicity [Unknown]
  - Brachytherapy [Unknown]

NARRATIVE: CASE EVENT DATE: 20250101
